FAERS Safety Report 5493828-0 (Version None)
Quarter: 2007Q4

REPORT INFORMATION
  Report Type: 
  Country: None (occurrence: None)
  Receive Date: 20071019
  Receipt Date: 20071004
  Transmission Date: 20080405
  Serious: Yes (Death)
  Sender: FDA-Public Use
  Company Number: 151

PATIENT
  Sex: Female
  Weight: 68.0396 kg

DRUGS (12)
  1. FAZACLO ODT [Suspect]
     Indication: SCHIZOAFFECTIVE DISORDER
     Dosage: 300 MG PO DAILY
     Route: 048
     Dates: start: 20060728, end: 20070915
  2. DEPAKOTE [Concomitant]
  3. AMANTADINE HCL [Concomitant]
  4. ZOLOFT [Concomitant]
  5. PROTONIX [Concomitant]
  6. ANTIVERT [Concomitant]
  7. NICOTINE [Concomitant]
  8. COLACE [Concomitant]
  9. LORAZEPAM [Concomitant]
  10. DESMOPRESSIN ACETATE [Concomitant]
  11. CYANOCOBALAMIN [Concomitant]
  12. ATROPINE 1% SOL [Concomitant]

REACTIONS (4)
  - BALANCE DISORDER [None]
  - CARDIAC ARREST [None]
  - FALL [None]
  - PARKINSONISM [None]
